FAERS Safety Report 8371509-3 (Version None)
Quarter: 2012Q2

REPORT INFORMATION
  Report Type: 
  Country: None (occurrence: None)
  Receive Date: 20120518
  Receipt Date: 20120516
  Transmission Date: 20120825
  Serious: Yes (Other)
  Sender: FDA-Public Use
  Company Number: US-PFIZER INC-2012118969

PATIENT
  Sex: Male
  Weight: 86.168 kg

DRUGS (1)
  1. CELEBREX [Suspect]
     Indication: BACK PAIN
     Dosage: 200 MG, 1X/DAY
     Dates: start: 20120501, end: 20120501

REACTIONS (5)
  - ABDOMINAL PAIN UPPER [None]
  - GASTRIC DISORDER [None]
  - HAEMATOCHEZIA [None]
  - DIZZINESS [None]
  - DRY MOUTH [None]
